FAERS Safety Report 7946342-4 (Version None)
Quarter: 2011Q4

REPORT INFORMATION
  Report Type: 
  Country: None (occurrence: None)
  Receive Date: 20111129
  Receipt Date: 20111120
  Transmission Date: 20120403
  Serious: Yes (Life-Threatening, Hospitalization, Disabling, Other)
  Sender: FDA-Public Use
  Company Number: US-ACTELION-A-US2011-54901

PATIENT

DRUGS (4)
  1. REVATIO [Concomitant]
  2. COUMADIN [Suspect]
  3. TRACLEER [Suspect]
     Indication: PULMONARY ARTERIAL HYPERTENSION
     Dosage: UNK MG, UNK
     Route: 048
     Dates: start: 20100505
  4. FLOLAN [Concomitant]

REACTIONS (6)
  - CRANIOPLASTY [None]
  - SUBDURAL HAEMORRHAGE [None]
  - SUBDURAL HAEMATOMA [None]
  - CRANIOTOMY [None]
  - LOSS OF CONSCIOUSNESS [None]
  - HEADACHE [None]
